FAERS Safety Report 21370471 (Version 1)
Quarter: 2022Q3

REPORT INFORMATION
  Report Type: Spontaneous
  Country: US (occurrence: None)
  Receive Date: 20220922
  Receipt Date: 20220922
  Transmission Date: 20221027
  Serious: No
  Sender: FDA-Public Use
  Company Number: None

PATIENT
  Sex: Male

DRUGS (1)
  1. LUMAKRAS [Suspect]
     Active Substance: SOTORASIB
     Indication: Renal cancer
     Dosage: 480 MG DAILY ORAL
     Route: 048
     Dates: start: 20220201, end: 20220909

REACTIONS (2)
  - Drug ineffective [None]
  - Therapy cessation [None]
